FAERS Safety Report 10365760 (Version 1)
Quarter: 2014Q3

REPORT INFORMATION
  Report Type: Spontaneous
  Country: US (occurrence: None)
  Receive Date: 20140804
  Receipt Date: 20140804
  Transmission Date: 20150326
  Serious: Yes (Life-Threatening, Hospitalization)
  Sender: FDA-Public Use
  Company Number: None

PATIENT
  Age: 86 Year
  Sex: Female
  Weight: 61.24 kg

DRUGS (1)
  1. NITROFURANTOIN MONOHYDRATE [Suspect]
     Active Substance: NITROFURANTOIN MONOHYDRATE
     Indication: BLADDER CATHETERISATION
     Dosage: 1 CAPSULE
     Route: 048
     Dates: start: 20140620, end: 20140716

REACTIONS (3)
  - Cardiac failure congestive [None]
  - Stress [None]
  - Pneumonia [None]

NARRATIVE: CASE EVENT DATE: 20140708
